FAERS Safety Report 15714322 (Version 4)
Quarter: 2019Q3

REPORT INFORMATION
  Report Type: Spontaneous
  Country: US (occurrence: US)
  Receive Date: 20181212
  Receipt Date: 20190709
  Transmission Date: 20191004
  Serious: Yes (Other)
  Sender: FDA-Public Use
  Company Number: US-SA-2018SA335554

PATIENT
  Age: 54 Year
  Sex: Female
  Weight: 88.4 kg

DRUGS (22)
  1. HERCEPTIN [Concomitant]
     Active Substance: TRASTUZUMAB
     Dosage: UNK UNK, UNK
  2. GLUCOSAMINE [Concomitant]
     Active Substance: GLUCOSAMINE
     Dosage: UNK
     Route: 065
     Dates: start: 2016
  3. CALCIUM [Concomitant]
     Active Substance: CALCIUM
     Dosage: UNK
     Dates: start: 2016
  4. TAXOTERE [Suspect]
     Active Substance: DOCETAXEL
     Dosage: 120 MG, Q3W
     Route: 042
     Dates: start: 20111116, end: 20111116
  5. VITAMIN C [Concomitant]
     Active Substance: ASCORBIC ACID
     Dosage: UNK
     Dates: start: 2017
  6. VITAMIN E [Concomitant]
     Active Substance: .ALPHA.-TOCOPHEROL
     Dosage: UNK UNK, UNK
     Dates: start: 2009
  7. TAXOTERE [Suspect]
     Active Substance: DOCETAXEL
     Dosage: 140 MG, Q3W
     Route: 042
     Dates: start: 20111005, end: 20111005
  8. GLUCOSAMINE + CHONDROITIN SULFATE [Concomitant]
     Active Substance: CHONDROITIN SULFATE (BOVINE)\GLUCOSAMINE SULFATE
     Dosage: UNK UNK, UNK
     Dates: start: 2009
  9. TAXOTERE [Suspect]
     Active Substance: DOCETAXEL
     Dosage: 120 MG, Q3W
     Route: 042
     Dates: start: 20111026, end: 20111026
  10. SELENIUM [Concomitant]
     Active Substance: SELENIUM
     Dosage: UNK
     Dates: start: 2016
  11. TAXOTERE [Suspect]
     Active Substance: DOCETAXEL
     Dosage: 140 MG, Q3W
     Route: 042
     Dates: start: 20110914, end: 20110914
  12. FISH OIL [Concomitant]
     Active Substance: FISH OIL
     Dosage: UNK UNK, UNK
     Dates: start: 2008
  13. VITAMIN D3 [Concomitant]
     Active Substance: CHOLECALCIFEROL
     Dosage: UNK UNK, UNK
     Dates: start: 2011
  14. ZINC. [Concomitant]
     Active Substance: ZINC
     Dosage: UNK
     Route: 065
     Dates: start: 2016
  15. B COMPLEX [VITAMIN B COMPLEX] [Concomitant]
     Dosage: UNK
     Dates: start: 2016
  16. TAXOTERE [Suspect]
     Active Substance: DOCETAXEL
     Indication: BREAST CANCER FEMALE
     Dosage: 160 MG, Q3W
     Route: 042
     Dates: start: 20110803, end: 20110803
  17. TAXOTERE [Suspect]
     Active Substance: DOCETAXEL
     Dosage: 140 MG, Q3W
     Route: 042
     Dates: start: 20110824, end: 20110824
  18. PARAPLATIN [Concomitant]
     Active Substance: CARBOPLATIN
     Dosage: UNK UNK, UNK
  19. LOESTRIN NOS [Concomitant]
     Active Substance: ETHINYL ESTRADIOL\NORETHINDRONE ACETATE
     Dosage: UNK
     Route: 065
     Dates: start: 2009
  20. POTASSIUM CITRATE. [Concomitant]
     Active Substance: POTASSIUM CITRATE
     Dosage: UNK
     Route: 065
     Dates: start: 2009
  21. COQ10 [UBIDECARENONE] [Concomitant]
     Active Substance: UBIDECARENONE
     Dosage: UNK
     Route: 065
     Dates: start: 2009
  22. OMEGA 369 [Concomitant]
     Active Substance: FISH OIL
     Dosage: UNK
     Route: 065
     Dates: start: 2016

REACTIONS (1)
  - Alopecia [Recovering/Resolving]

NARRATIVE: CASE EVENT DATE: 20111228
